FAERS Safety Report 19591496 (Version 2)
Quarter: 2022Q2

REPORT INFORMATION
  Report Type: Spontaneous
  Country: US (occurrence: US)
  Receive Date: 20210721
  Receipt Date: 20220422
  Transmission Date: 20220720
  Serious: No
  Sender: FDA-Public Use
  Company Number: US-PFIZER INC-2021785245

PATIENT
  Age: 81 Year
  Sex: Female

DRUGS (2)
  1. ESTRING [Suspect]
     Active Substance: ESTRADIOL
     Dosage: QUANTITY OF 1 FOR 90 DAYS
  2. PREMARIN [Concomitant]
     Active Substance: ESTROGENS, CONJUGATED
     Dosage: 0.5 G, EVERY OTHER NIGHT AS DIRECTED
     Route: 067

REACTIONS (2)
  - Anxiety [Unknown]
  - Memory impairment [Unknown]
